FAERS Safety Report 21313245 (Version 1)
Quarter: 2022Q3

REPORT INFORMATION
  Report Type: Spontaneous
  Country: US (occurrence: None)
  Receive Date: 20220909
  Receipt Date: 20220909
  Transmission Date: 20221027
  Serious: No
  Sender: FDA-Public Use
  Company Number: None

PATIENT
  Sex: Female

DRUGS (3)
  1. SUMATRIPTAN [Suspect]
     Active Substance: SUMATRIPTAN
  2. RIZATRIPTAN [Concomitant]
     Active Substance: RIZATRIPTAN
  3. NAPROXEN [Suspect]
     Active Substance: NAPROXEN

REACTIONS (1)
  - Treatment failure [None]
